FAERS Safety Report 6156246-8 (Version None)
Quarter: 2009Q2

REPORT INFORMATION
  Report Type: 
  Country: None (occurrence: None)
  Receive Date: 20090415
  Receipt Date: 20090413
  Transmission Date: 20091009
  Serious: Yes (Other)
  Sender: FDA-Public Use
  Company Number: US-RB-009295-09

PATIENT
  Sex: Female

DRUGS (4)
  1. SUBUTEX [Suspect]
     Route: 060
     Dates: start: 20090306
  2. SUBOXONE [Suspect]
     Route: 060
     Dates: start: 20081101, end: 20090305
  3. SEROQUEL [Concomitant]
     Indication: INSOMNIA
     Dosage: 25-75MG AT BEDTIME AS NEEDED
     Route: 048
  4. XANAX [Concomitant]
     Indication: ANXIETY
     Route: 048

REACTIONS (2)
  - ABORTION [None]
  - DRUG EXPOSURE DURING PREGNANCY [None]
